FAERS Safety Report 6443808-3 (Version None)
Quarter: 2009Q4

REPORT INFORMATION
  Report Type: 
  Country: None (occurrence: None)
  Receive Date: 20091117
  Receipt Date: 20090728
  Transmission Date: 20100525
  Serious: Yes (Hospitalization, Other)
  Sender: FDA-Public Use
  Company Number: PHHY2009BR49718

PATIENT
  Sex: Female

DRUGS (1)
  1. DIOCOMB SI [Suspect]

REACTIONS (1)
  - CARDIAC DISORDER [None]
